FAERS Safety Report 6652957-6 (Version None)
Quarter: 2010Q1

REPORT INFORMATION
  Report Type: 
  Country: None (occurrence: None)
  Receive Date: 20100326
  Receipt Date: 20100315
  Transmission Date: 20100710
  Serious: Yes (Other)
  Sender: FDA-Public Use
  Company Number: PHHY2010FR11850

PATIENT
  Sex: Female
  Weight: 59 kg

DRUGS (9)
  1. ZOMETA [Suspect]
     Indication: MULTIPLE MYELOMA
     Dosage: 4 MG, UNK
     Dates: start: 20100215
  2. VELCADE [Suspect]
     Dosage: 1.3 NG/M2
  3. DEXAMETHASONE [Concomitant]
  4. ACETAMINOPHEN [Concomitant]
  5. ACUPAN [Concomitant]
     Dosage: 1 TO 4 DF
     Dates: end: 20100216
  6. OXYCONTIN [Concomitant]
     Dosage: 2 DF, UNK
     Dates: end: 20100219
  7. ATARAX [Concomitant]
     Dosage: 1 DF, UNK
     Dates: end: 20100216
  8. STILNOX [Concomitant]
     Dosage: 1 DF, UNK
     Dates: end: 20100217
  9. ZELITREX [Concomitant]
     Dosage: 1 DF, UNK
     Dates: end: 20100217

REACTIONS (10)
  - ABDOMINAL PAIN [None]
  - ASTHENIA [None]
  - CELL DEATH [None]
  - CHOLESTASIS [None]
  - CYTOLYTIC HEPATITIS [None]
  - FATIGUE [None]
  - HAEMOGLOBIN DECREASED [None]
  - HEPATOBILIARY DISEASE [None]
  - NAUSEA [None]
  - PYREXIA [None]
